FAERS Safety Report 25583496 (Version 1)
Quarter: 2025Q3

REPORT INFORMATION
  Report Type: Spontaneous
  Country: US (occurrence: US)
  Receive Date: 20250721
  Receipt Date: 20250721
  Transmission Date: 20251021
  Serious: Yes (Other)
  Sender: SANOFI AVENTIS
  Company Number: US-DialogSolutions-SAAVPROD-PI798968-C1

PATIENT
  Age: 28 Year
  Sex: Male

DRUGS (1)
  1. ALEMTUZUMAB [Suspect]
     Active Substance: ALEMTUZUMAB
     Indication: T-cell prolymphocytic leukaemia
     Dosage: 30 MG, TIW
     Route: 041

REACTIONS (4)
  - Bone marrow failure [Unknown]
  - Off label use [Unknown]
  - Myelosuppression [Unknown]
  - Cytopenia [Recovered/Resolved]
